FAERS Safety Report 9584110 (Version 1)
Quarter: 2013Q4

REPORT INFORMATION
  Report Type: Spontaneous
  Country: US (occurrence: US)
  Receive Date: 20131002
  Receipt Date: 20131002
  Transmission Date: 20140711
  Serious: No
  Sender: FDA-Public Use
  Company Number: US-AMGEN-USASP2013051999

PATIENT
  Age: 70 Year
  Sex: Male
  Weight: 104.31 kg

DRUGS (9)
  1. ENBREL [Suspect]
     Indication: PRODUCT USED FOR UNKNOWN INDICATION
     Dosage: 50 MG, QWK
     Route: 058
  2. LISINOPRIL [Concomitant]
     Dosage: 2.5 MG, UNK
  3. DULERA [Concomitant]
     Dosage: 100-5 MCG
  4. NIACIN [Concomitant]
     Dosage: 500 MG, UNK
  5. CRESTOR [Concomitant]
     Dosage: 20 MG, UNK
  6. FISH OIL [Concomitant]
     Dosage: UNK
  7. ASPIRIN BUFFERED [Concomitant]
     Dosage: 325 MG, UNK
  8. VITAMIN D                          /00107901/ [Concomitant]
     Dosage: 400 UNIT, UNK
  9. CLOBETASOL [Concomitant]
     Dosage: 0.05 %, UNK

REACTIONS (1)
  - Drug ineffective [Unknown]
